FAERS Safety Report 20475490 (Version 6)
Quarter: 2022Q4

REPORT INFORMATION
  Report Type: Other
  Country: CA (occurrence: None)
  Receive Date: 20220215
  Receipt Date: 20221123
  Transmission Date: 20230113
  Serious: Yes (Hospitalization, Other)
  Sender: FDA-Public Use
  Company Number: CA-ROCHE-3008246

PATIENT
  Sex: Female

DRUGS (2)
  1. OCREVUS [Suspect]
     Active Substance: OCRELIZUMAB
     Indication: Primary progressive multiple sclerosis
     Dosage: THEN 600 MG EVERY 6 MONTHS
     Route: 042
     Dates: start: 20180528
  2. PREGABALIN [Concomitant]
     Active Substance: PREGABALIN

REACTIONS (10)
  - Foot fracture [Not Recovered/Not Resolved]
  - COVID-19 pneumonia [Not Recovered/Not Resolved]
  - Ill-defined disorder [Unknown]
  - Multiple sclerosis [Unknown]
  - Brain neoplasm [Unknown]
  - Alopecia [Unknown]
  - White blood cell count decreased [Unknown]
  - Weight increased [Unknown]
  - Movement disorder [Not Recovered/Not Resolved]
  - Fatigue [Not Recovered/Not Resolved]
